FAERS Safety Report 11855933 (Version 1)
Quarter: 2015Q4

REPORT INFORMATION
  Report Type: Spontaneous
  Country: US (occurrence: US)
  Receive Date: 20151221
  Receipt Date: 20151221
  Transmission Date: 20160305
  Serious: Yes (Other)
  Sender: FDA-Public Use
  Company Number: US-CELGENE-USA-2015121853

PATIENT

DRUGS (2)
  1. ENTINOSTAT [Suspect]
     Active Substance: ENTINOSTAT
     Indication: NEOPLASM
     Route: 048
  2. AZACITIDINE INJECTABLE [Suspect]
     Active Substance: AZACITIDINE
     Indication: NEOPLASM
     Dosage: 50 MILLIGRAM/SQ. METER
     Route: 058

REACTIONS (13)
  - Thrombocytopenia [Unknown]
  - Vomiting [Unknown]
  - Asthenia [Unknown]
  - Arthralgia [Unknown]
  - Myalgia [Unknown]
  - Nausea [Unknown]
  - Neoplasm [Unknown]
  - Infection [Unknown]
  - Fatigue [Unknown]
  - Anaemia [Unknown]
  - Hyponatraemia [Unknown]
  - Neutropenia [Unknown]
  - Hypokalaemia [Unknown]
